FAERS Safety Report 21978033 (Version 4)
Quarter: 2023Q1

REPORT INFORMATION
  Report Type: Report from Study
  Country: US (occurrence: US)
  Receive Date: 20230210
  Receipt Date: 20230328
  Transmission Date: 20230418
  Serious: Yes (Hospitalization)
  Sender: FDA-Public Use
  Company Number: US-PFIZER INC-PV202300023314

PATIENT
  Age: 4 Year
  Sex: Female
  Weight: 13.3 kg

DRUGS (19)
  1. PALBOCICLIB [Suspect]
     Active Substance: PALBOCICLIB
     Indication: Neuroblastoma
     Dosage: 45 MG, 1X/DAY
     Route: 048
     Dates: start: 20230126, end: 20230202
  2. TOPOTECAN [Suspect]
     Active Substance: TOPOTECAN HYDROCHLORIDE
     Indication: Neuroblastoma
     Dosage: 0.45 MG, 1X/DAY
     Route: 042
     Dates: start: 20230126, end: 20230130
  3. CYCLOPHOSPHAMIDE [Suspect]
     Active Substance: CYCLOPHOSPHAMIDE
     Indication: Neuroblastoma
     Dosage: 144 MG, 1X/DAY
     Route: 042
     Dates: start: 20230126, end: 20230130
  4. OXYCODONE [Concomitant]
     Active Substance: OXYCODONE
     Indication: Pain
     Dosage: 0.65 ML, AS NEEDED, LIQUID
     Route: 048
     Dates: start: 20230120
  5. MORPHINE [Concomitant]
     Active Substance: MORPHINE
     Indication: Pain
     Dosage: 0.4 MG, ONCE
     Route: 042
     Dates: start: 20230120, end: 20230120
  6. MIDAZOLAM [Concomitant]
     Active Substance: MIDAZOLAM
     Indication: Sedative therapy
     Dosage: 1 MG ONCE
     Route: 042
     Dates: start: 20230120, end: 20230120
  7. FENTANYL [Concomitant]
     Active Substance: FENTANYL
     Indication: Pain
     Dosage: 15 UG ONCE
     Route: 042
     Dates: start: 20230120, end: 20230120
  8. PROPOFOL [Concomitant]
     Active Substance: PROPOFOL
     Indication: Sedation
     Dosage: 30 MG ONCE
     Route: 042
     Dates: start: 20230120, end: 20230120
  9. LIDOCAINE [Concomitant]
     Active Substance: LIDOCAINE
     Indication: Pain prophylaxis
     Dosage: 8 MG ONCE
     Route: 042
     Dates: start: 20230120, end: 20230120
  10. GADOTERATE SODIUM [Concomitant]
     Active Substance: GADOTERATE SODIUM
     Indication: Sedation
     Dosage: 2.56 ML ONCE
     Route: 042
     Dates: start: 20230120, end: 20230120
  11. ACETAMINOPHEN [Concomitant]
     Active Substance: ACETAMINOPHEN
     Indication: Pain
     Dosage: 180 MG ONCE
     Route: 042
     Dates: start: 20230120, end: 20230120
  12. SODIUM CHLORIDE [Concomitant]
     Active Substance: SODIUM CHLORIDE
     Indication: Prophylaxis against dehydration
     Dosage: 932 ML ONCE, 0.9%
     Route: 042
     Dates: start: 20230120, end: 20230120
  13. DEXAMETHASONE [Concomitant]
     Active Substance: DEXAMETHASONE
     Indication: Premedication
     Dosage: 3 MG, 1X/DAY
     Route: 048
     Dates: start: 20230126, end: 20230130
  14. ONDANSETRON [Concomitant]
     Active Substance: ONDANSETRON
     Indication: Prophylaxis of nausea and vomiting
     Dosage: 4 MG, 1X/DAY
     Route: 048
     Dates: start: 20230126, end: 20230127
  15. ONDANSETRON [Concomitant]
     Active Substance: ONDANSETRON
     Dosage: 2 MG, 1X/DAY
     Route: 042
     Dates: start: 20230128, end: 20230130
  16. ACETAMINOPHEN\HYDROCODONE [Concomitant]
     Active Substance: ACETAMINOPHEN\HYDROCODONE
     Indication: Pain
     Dosage: 2.5 MG ONCE
     Route: 048
     Dates: start: 20230127, end: 20230127
  17. DIPHENHYDRAMINE [Concomitant]
     Active Substance: DIPHENHYDRAMINE
     Indication: Pruritus
     Dosage: 12.5 MG, AS NEEDED
     Route: 048
     Dates: start: 20230127, end: 20230127
  18. DEXTROSE\SODIUM CHLORIDE [Concomitant]
     Active Substance: DEXTROSE\SODIUM CHLORIDE
     Indication: Prophylaxis against dehydration
     Dosage: 435 ML ONCE
     Route: 042
     Dates: start: 20230126, end: 20230130
  19. LORAZEPAM [Concomitant]
     Active Substance: LORAZEPAM
     Indication: Nausea
     Dosage: 0.3 MG, AS NEEDED
     Route: 042
     Dates: start: 20230128, end: 20230128

REACTIONS (2)
  - Anaemia [Not Recovered/Not Resolved]
  - Platelet count decreased [Recovered/Resolved]

NARRATIVE: CASE EVENT DATE: 20230202
